FAERS Safety Report 22021559 (Version 1)
Quarter: 2023Q1

REPORT INFORMATION
  Report Type: Spontaneous
  Country: US (occurrence: US)
  Receive Date: 20230222
  Receipt Date: 20230222
  Transmission Date: 20230418
  Serious: Yes (Hospitalization, Other)
  Sender: FDA-Public Use
  Company Number: US-JNJFOC-20230237821

PATIENT
  Age: 89 Year
  Sex: Male
  Weight: 146 kg

DRUGS (3)
  1. ERLEADA [Suspect]
     Active Substance: APALUTAMIDE
     Indication: Prostate cancer
     Route: 048
  2. XGEVA [Concomitant]
     Active Substance: DENOSUMAB
     Indication: Product used for unknown indication
  3. LUPRON [Concomitant]
     Active Substance: LEUPROLIDE ACETATE

REACTIONS (4)
  - Cardiac arrest [Recovering/Resolving]
  - Hot flush [Not Recovered/Not Resolved]
  - Rash [Not Recovered/Not Resolved]
  - Off label use [Unknown]

NARRATIVE: CASE EVENT DATE: 20230205
